FAERS Safety Report 22856982 (Version 3)
Quarter: 2023Q4

REPORT INFORMATION
  Report Type: Spontaneous
  Country: US (occurrence: US)
  Receive Date: 20230823
  Receipt Date: 20231117
  Transmission Date: 20240110
  Serious: No
  Sender: FDA-Public Use
  Company Number: US-Stemline Therapeutics, Inc.-2023ST002155

PATIENT
  Age: 52 Year
  Sex: Female

DRUGS (1)
  1. ORSERDU [Suspect]
     Active Substance: ELACESTRANT
     Indication: Product used for unknown indication
     Dosage: 344 MG (86 MG FOUR TABLETS)
     Route: 048
     Dates: start: 20230531

REACTIONS (3)
  - Myalgia [Not Recovered/Not Resolved]
  - Therapy cessation [Unknown]
  - Headache [Not Recovered/Not Resolved]
